FAERS Safety Report 7500017 (Version 2)
Quarter: 2013Q3

REPORT INFORMATION
  Report Type: Spontaneous
  Country: US (occurrence: US)
  Receive Date: 20100723
  Receipt Date: 20130729
  Transmission Date: 20140515
  Serious: Yes (Other)
  Sender: FDA-Public Use
  Company Number: US-PFIZER INC-2008098058

PATIENT
  Age: 47 Year
  Sex: Female
  Weight: 61.68 kg

DRUGS (7)
  1. CHANTIX [Suspect]
     Indication: SMOKING CESSATION THERAPY
     Dosage: UNK
     Route: 048
     Dates: start: 20081030, end: 20081110
  2. CYMBALTA [Concomitant]
     Dosage: UNK
  3. KADIAN [Concomitant]
     Dosage: UNK
  4. LIDODERM [Concomitant]
     Dosage: UNK
  5. LUNESTA [Concomitant]
     Dosage: UNK
  6. PROMETHAZINE [Concomitant]
     Dosage: UNK
  7. TYLENOL W/CODEINE NO. 3 [Concomitant]
     Dosage: UNK

REACTIONS (6)
  - Hallucination [Unknown]
  - Yellow skin [Unknown]
  - Night sweats [Unknown]
  - Abnormal dreams [Unknown]
  - Aspartate aminotransferase increased [Unknown]
  - Alanine aminotransferase increased [Unknown]
